FAERS Safety Report 25251878 (Version 1)
Quarter: 2025Q2

REPORT INFORMATION
  Report Type: Spontaneous
  Country: US (occurrence: US)
  Receive Date: 20250429
  Receipt Date: 20250429
  Transmission Date: 20250717
  Serious: No
  Sender: PFIZER
  Company Number: US-PFIZER INC-202500088764

PATIENT
  Age: 53 Year
  Sex: Female

DRUGS (1)
  1. XELJANZ XR [Suspect]
     Active Substance: TOFACITINIB CITRATE
     Dosage: 11 MG TABLET, EXTENDED RELEASE TAKE 1 TABLET(S) EVERY DAY BY ORAL ROUTE FOR 30 DAYS
     Route: 048

REACTIONS (1)
  - Antibody test abnormal [Unknown]
